FAERS Safety Report 11209565 (Version 1)
Quarter: 2015Q2

REPORT INFORMATION
  Report Type: Spontaneous
  Country: CA (occurrence: CA)
  Receive Date: 20150622
  Receipt Date: 20150622
  Transmission Date: 20150821
  Serious: Yes (Other)
  Sender: FDA-Public Use
  Company Number: CA-RB PHARMACEUTICALS LIMITED-RB-72196-2014

PATIENT
  Age: 21 Year
  Sex: Female
  Weight: 58.96 kg

DRUGS (6)
  1. SUBUTEX [Suspect]
     Active Substance: BUPRENORPHINE HYDROCHLORIDE
     Indication: DRUG DEPENDENCE
     Dosage: 16 MG DAILY
     Route: 060
     Dates: start: 20141018
  2. NICOTINE. [Concomitant]
     Active Substance: NICOTINE
     Indication: PRODUCT USED FOR UNKNOWN INDICATION
     Dosage: 10 UNIT, UNK
     Route: 065
     Dates: start: 2009
  3. NICOTINE. [Concomitant]
     Active Substance: NICOTINE
     Dosage: 1-2 CIGARETTES PER DAY
     Route: 065
  4. HYDROMORPH CONTIN [Suspect]
     Active Substance: HYDROMORPHONE
     Indication: DRUG DEPENDENCE
     Dosage: 30-60 MG DAILY
     Route: 045
     Dates: start: 201305
  5. SUBOXONE [Suspect]
     Active Substance: BUPRENORPHINE HYDROCHLORIDE\NALOXONE HYDROCHLORIDE
     Indication: DRUG DEPENDENCE
     Dosage: 8 MG, QD
     Route: 060
     Dates: start: 2014, end: 2014
  6. HYDROMORPH CONTIN [Suspect]
     Active Substance: HYDROMORPHONE
     Dosage: 30-60 MG DAILY
     Route: 042
     Dates: end: 20141108

REACTIONS (4)
  - Premature delivery [Recovered/Resolved]
  - Maternal exposure during pregnancy [Recovered/Resolved]
  - Drug abuse [Recovered/Resolved]
  - Premature labour [Recovered/Resolved]

NARRATIVE: CASE EVENT DATE: 2014
